FAERS Safety Report 10646738 (Version 2)
Quarter: 2015Q1

REPORT INFORMATION
  Report Type: Spontaneous
  Country: US (occurrence: US)
  Receive Date: 20141211
  Receipt Date: 20150320
  Transmission Date: 20150720
  Serious: Yes (Other)
  Sender: FDA-Public Use
  Company Number: US-PFIZER INC-2014335612

PATIENT
  Age: 69 Year
  Sex: Male
  Weight: 101 kg

DRUGS (22)
  1. LANTUS [Concomitant]
     Active Substance: INSULIN GLARGINE
     Indication: DIABETES MELLITUS
     Dosage: 20 UNITS, DAILY AT BEDTIME
     Route: 058
  2. GABAPENTIN. [Concomitant]
     Active Substance: GABAPENTIN
     Dosage: UNK, 3X/DAY
     Route: 048
  3. ASPIRIN. [Concomitant]
     Active Substance: ASPIRIN
     Indication: CARDIOVASCULAR EVENT PROPHYLAXIS
     Dosage: 81 MG, DAILY
     Route: 048
  4. HYDRALAZINE [Concomitant]
     Active Substance: HYDRALAZINE HYDROCHLORIDE
     Indication: HYPERTENSION
     Dosage: 25 MG, 3X/DAY
     Route: 048
  5. LIDOCAINE. [Concomitant]
     Active Substance: LIDOCAINE
     Indication: PAIN
     Dosage: 1 DOSE (OF 5 %),DAILY, AS NEEDED
     Route: 061
  6. LORTAB [Concomitant]
     Active Substance: ACETAMINOPHEN\HYDROCODONE BITARTRATE
     Indication: PAIN
     Dosage: 7.5/500MG EVERY 4 HOURS
  7. LEVOTHROID [Concomitant]
     Active Substance: LEVOTHYROXINE SODIUM
     Dosage: 50 ?G, DAILY
     Route: 048
  8. PROCHLORPERAZINE. [Concomitant]
     Active Substance: PROCHLORPERAZINE
     Indication: NAUSEA
     Dosage: 10 MG, EVERY 6 HOURS AS NEEDED
  9. TRAMADOL [Concomitant]
     Active Substance: TRAMADOL
     Indication: PAIN IN EXTREMITY
     Dosage: UNK, AS NEEDED
     Route: 048
  10. BUDEPRION [Concomitant]
     Active Substance: BUPROPION HYDROCHLORIDE
     Indication: DEPRESSION
     Dosage: 300 MG, EVERY 12 HOURS
     Route: 048
  11. METOPROLOL [Concomitant]
     Active Substance: METOPROLOL
     Indication: HYPERTENSION
     Dosage: UNK, DAILY
     Route: 048
  12. DILAUDID [Concomitant]
     Active Substance: HYDROMORPHONE HYDROCHLORIDE
     Indication: MUSCULOSKELETAL DISCOMFORT
     Dosage: 2 MG, EVERY 4 HOURS AS NEEDED (X 30 DAYS)
     Route: 048
  13. SUTENT [Suspect]
     Active Substance: SUNITINIB MALATE
     Indication: RENAL CELL CARCINOMA STAGE IV
     Dosage: 50 MG, DAILY 4 WEEKS ON 2 WEEKS OFF
     Dates: start: 20141015, end: 20141222
  14. MAGIC MOUTHWASH [Concomitant]
     Active Substance: DIPHENHYDRAMINE HYDROCHLORIDE\LIDOCAINE HYDROCHLORIDE\NYSTATIN
     Indication: ORAL PAIN
     Dosage: UNK, EVERY 4 HOURS AS NEEDED
  15. PERCOCET [Concomitant]
     Active Substance: ACETAMINOPHEN\OXYCODONE HYDROCHLORIDE
     Dosage: UNK, AS NEEDED
     Route: 048
  16. SODIUM CHLORIDE. [Concomitant]
     Active Substance: SODIUM CHLORIDE
     Dosage: 1000 ML, SINGLE OVER 4 HOURS
     Route: 042
     Dates: start: 20141124, end: 20141124
  17. AMLODIPINE [Concomitant]
     Active Substance: AMLODIPINE BESYLATE
     Indication: HYPERTENSION
     Dosage: 10 MG, DAILY
     Route: 048
  18. ATORVASTATIN [Concomitant]
     Active Substance: ATORVASTATIN
     Indication: BLOOD CHOLESTEROL INCREASED
     Dosage: 40 MG, DAILY
     Route: 048
  19. LEXAPRO [Concomitant]
     Active Substance: ESCITALOPRAM OXALATE
     Indication: DEPRESSION
     Dosage: 20 MG, DAILY
  20. PROTONIX [Concomitant]
     Active Substance: PANTOPRAZOLE SODIUM
     Indication: GASTROOESOPHAGEAL REFLUX DISEASE
     Dosage: 40 MG, DAILY
     Route: 048
  21. LOPERAMIDE HYDROCHLORIDE. [Concomitant]
     Active Substance: LOPERAMIDE HYDROCHLORIDE
     Indication: DIARRHOEA
     Dosage: UNK, AS NEEDED
  22. ISOSORBIDE MONONITRATE. [Concomitant]
     Active Substance: ISOSORBIDE MONONITRATE
     Dosage: UNK, SR 24 HR  DAILY
     Route: 048

REACTIONS (5)
  - Diarrhoea [Recovered/Resolved]
  - Pneumonia [Unknown]
  - Renal impairment [Recovered/Resolved]
  - Stomatitis [Recovered/Resolved]
  - Skin exfoliation [Unknown]

NARRATIVE: CASE EVENT DATE: 20141113
